FAERS Safety Report 6127350-5 (Version None)
Quarter: 2009Q1

REPORT INFORMATION
  Report Type: 
  Country: None (occurrence: None)
  Receive Date: 20090319
  Receipt Date: 20090306
  Transmission Date: 20090719
  Serious: Yes (Hospitalization)
  Sender: FDA-Public Use
  Company Number: MOZO-1000175

PATIENT
  Age: 65 Year
  Sex: Female

DRUGS (6)
  1. MOZOBIL [Suspect]
     Indication: B-CELL LYMPHOMA
     Dosage: 0.8 ML, QD
     Dates: end: 20090205
  2. MS CONTIN [Concomitant]
  3. AMBIEN [Concomitant]
  4. SENNA (SENNA ALEXANDRINA) [Concomitant]
  5. COLACE (DOCUSATE SODIUM) [Concomitant]
  6. COMPAZINE [Concomitant]

REACTIONS (3)
  - GAIT DISTURBANCE [None]
  - MYELITIS TRANSVERSE [None]
  - URINARY INCONTINENCE [None]
